FAERS Safety Report 10239794 (Version 1)
Quarter: 2014Q2

REPORT INFORMATION
  Report Type: Report from Study
  Country: BR (occurrence: BR)
  Receive Date: 20140616
  Receipt Date: 20140616
  Transmission Date: 20141212
  Serious: Yes (Other)
  Sender: FDA-Public Use
  Company Number: BR-ABBVIE-14P-020-1245324-00

PATIENT
  Age: 34 Year
  Sex: Male
  Weight: 60 kg

DRUGS (7)
  1. HUMIRA [Suspect]
     Indication: ANKYLOSING SPONDYLITIS
     Route: 058
     Dates: start: 201402, end: 201404
  2. HUMIRA [Suspect]
     Route: 058
  3. ISONIAZIDE [Suspect]
     Indication: TUBERCULOSIS
     Dosage: SUPPOSED TO END THERAPY 8/2014
     Route: 048
     Dates: start: 201402
  4. PARACETAMOL [Concomitant]
     Indication: PAIN
     Route: 048
     Dates: start: 2002
  5. TRAMADOL [Concomitant]
     Indication: PAIN
     Route: 048
     Dates: start: 2008
  6. DICLOFENAC [Concomitant]
     Indication: PAIN
     Dosage: AS NEEDED
     Route: 048
     Dates: start: 2002
  7. OMEPRAZOLE [Concomitant]
     Indication: PROPHYLAXIS AGAINST GASTROINTESTINAL ULCER
     Route: 048
     Dates: start: 2013

REACTIONS (4)
  - Immunodeficiency [Unknown]
  - Tuberculosis [Not Recovered/Not Resolved]
  - Nausea [Not Recovered/Not Resolved]
  - Oropharyngeal pain [Not Recovered/Not Resolved]
